FAERS Safety Report 8029051 (Version 4)
Quarter: 2013Q1

REPORT INFORMATION
  Report Type: Spontaneous
  Country: DE (occurrence: DE)
  Receive Date: 20110711
  Receipt Date: 20130125
  Transmission Date: 20140127
  Serious: Yes (Hospitalization)
  Sender: FDA-Public Use
  Company Number: DE-GLAXOSMITHKLINE-D0069210B

PATIENT
  Age: 21 None
  Sex: Female
  Weight: 70 kg

DRUGS (8)
  1. LAMICTAL [Suspect]
     Dosage: 100MG SEE DOSAGE TEXT
     Route: 048
     Dates: start: 20110629, end: 20110629
  2. FLUOXETIN [Suspect]
     Dosage: 40MG SEE DOSAGE TEXT
     Route: 048
     Dates: start: 20110629, end: 20110629
  3. ABILIFY [Suspect]
     Dosage: 10MG SEE DOSAGE TEXT
     Route: 048
     Dates: start: 20110629, end: 20110629
  4. AMOXICILLIN [Suspect]
     Dosage: 1000MG SEE DOSAGE TEXT
     Route: 048
     Dates: start: 20110629, end: 20110629
  5. ALCOHOL [Suspect]
     Route: 048
     Dates: start: 20110629, end: 20110629
  6. BEER [Suspect]
     Dosage: 1BT SEE DOSAGE TEXT
     Route: 048
     Dates: start: 20110629, end: 20110629
  7. SPIRITS [Suspect]
     Dosage: 1BT SEE DOSAGE TEXT
     Route: 048
     Dates: start: 20110629, end: 20110629
  8. DETERGENTS [Suspect]
     Route: 048
     Dates: start: 20110629, end: 20110629

REACTIONS (11)
  - Suicide attempt [Recovered/Resolved]
  - Intentional overdose [Unknown]
  - Convulsion [Recovered/Resolved]
  - Vomiting [Recovered/Resolved]
  - Endotracheal intubation [Recovered/Resolved]
  - Mechanical ventilation [Recovered/Resolved]
  - Gastrostomy [Recovered/Resolved]
  - Somnolence [Recovered/Resolved]
  - Tachycardia [Recovered/Resolved]
  - Depressed level of consciousness [Recovered/Resolved]
  - Intentional overdose [None]
